FAERS Safety Report 8902114 (Version 2)
Quarter: 2012Q4

REPORT INFORMATION
  Report Type: 
  Country: FR (occurrence: FR)
  Receive Date: 20121112
  Receipt Date: 20121123
  Transmission Date: 20130627
  Serious: Yes (Other)
  Sender: FDA-Public Use
  Company Number: FR-JNJFOC-20121103806

PATIENT
  Sex: Female

DRUGS (3)
  1. PSEUDOEPHEDRINE HYDROCHLORIDE [Suspect]
     Route: 048
  2. PSEUDOEPHEDRINE HYDROCHLORIDE [Suspect]
     Indication: PRODUCT USED FOR UNKNOWN INDICATION
     Route: 048
     Dates: start: 1993
  3. ACETYLCYSTEINE\TUAMINOHEPTANE [Suspect]
     Indication: PRODUCT USED FOR UNKNOWN INDICATION
     Route: 045
     Dates: start: 1993

REACTIONS (2)
  - Erythema multiforme [Recovered/Resolved]
  - Toxic skin eruption [Unknown]
